FAERS Safety Report 6284367-8 (Version None)
Quarter: 2009Q3

REPORT INFORMATION
  Report Type: 
  Country: None (occurrence: None)
  Receive Date: 20090727
  Receipt Date: 20090720
  Transmission Date: 20100115
  Serious: Yes (Other)
  Sender: FDA-Public Use
  Company Number: US-AMGEN-KDL356563

PATIENT
  Sex: Male

DRUGS (13)
  1. ARANESP [Suspect]
     Indication: DIALYSIS
     Dates: start: 20080519
  2. SENSIPAR [Concomitant]
     Indication: HYPERPARATHYROIDISM SECONDARY
  3. LIPITOR [Concomitant]
  4. LISINOPRIL [Concomitant]
  5. PRILOSEC [Concomitant]
  6. NEPHRON FA [Concomitant]
     Route: 048
  7. ZEMPLAR [Concomitant]
  8. HYDRALAZINE HCL [Concomitant]
  9. IMDUR [Concomitant]
  10. COREG [Concomitant]
  11. K-DUR [Concomitant]
  12. AMBIEN [Concomitant]
  13. ASPIRIN [Concomitant]

REACTIONS (1)
  - HAEMOGLOBIN DECREASED [None]
